FAERS Safety Report 4767318-4 (Version None)
Quarter: 2005Q3

REPORT INFORMATION
  Report Type: 
  Country: None (occurrence: None)
  Receive Date: 20050913
  Receipt Date: 20050903
  Transmission Date: 20060218
  Serious: Yes (Other)
  Sender: FDA-Public Use
  Company Number: GB-GLAXOSMITHKLINE-B0392708A

PATIENT
  Age: 66 Year
  Sex: Male
  Weight: 95 kg

DRUGS (10)
  1. AVANDAMET [Suspect]
     Indication: DIABETES MELLITUS NON-INSULIN-DEPENDENT
     Route: 048
     Dates: start: 20050630, end: 20050815
  2. ALLOPURINOL [Concomitant]
     Indication: GOUT
     Dosage: 300MG PER DAY
     Route: 065
     Dates: start: 20010201
  3. FENOFIBRATE [Concomitant]
     Indication: HYPERLIPIDAEMIA
     Dosage: 160MG PER DAY
     Route: 065
     Dates: start: 20040901
  4. THYROXINE [Concomitant]
     Dosage: 50MCG PER DAY
     Route: 065
     Dates: start: 20001101
  5. DOXAZOSIN [Concomitant]
     Dosage: 50MG PER DAY
     Route: 065
     Dates: start: 20050401
  6. ATENOLOL [Concomitant]
     Dosage: 25MG PER DAY
     Route: 065
  7. AMLODIPINE [Concomitant]
     Indication: HYPERTENSION
     Dosage: 10MG PER DAY
     Route: 065
     Dates: start: 20050701
  8. WARFARIN [Concomitant]
     Indication: ATRIAL FIBRILLATION
     Route: 065
     Dates: start: 20041201
  9. ATORVASTATIN CALCIUM [Concomitant]
     Indication: HYPERLIPIDAEMIA
     Dosage: 10MG PER DAY
     Route: 065
     Dates: start: 20041001
  10. METFORMIN [Concomitant]
     Indication: DIABETES MELLITUS
     Dosage: 1G TWICE PER DAY
     Route: 065
     Dates: start: 20031201

REACTIONS (1)
  - MYALGIA [None]
